FAERS Safety Report 12994020 (Version 2)
Quarter: 2017Q2

REPORT INFORMATION
  Report Type: Spontaneous
  Country: US (occurrence: US)
  Receive Date: 20161202
  Receipt Date: 20170406
  Transmission Date: 20170830
  Serious: No
  Sender: FDA-Public Use
  Company Number: US-JNJFOC-20161110573

PATIENT
  Sex: Female

DRUGS (1)
  1. RISPERDAL CONSTA [Suspect]
     Active Substance: RISPERIDONE
     Indication: INJURY ASSOCIATED WITH DEVICE
     Route: 050

REACTIONS (3)
  - Injury associated with device [Unknown]
  - Device leakage [Unknown]
  - Device malfunction [Unknown]

NARRATIVE: CASE EVENT DATE: 20161109
